FAERS Safety Report 20702210 (Version 1)
Quarter: 2022Q2

REPORT INFORMATION
  Report Type: Spontaneous
  Country: US (occurrence: US)
  Receive Date: 20220412
  Receipt Date: 20220412
  Transmission Date: 20220720
  Serious: No
  Sender: FDA-Public Use
  Company Number: US-BAYER-2022A043769

PATIENT
  Age: 26 Year
  Sex: Female

DRUGS (5)
  1. CLARITIN [Suspect]
     Active Substance: LORATADINE
     Indication: Hypersensitivity
     Dosage: UNK
     Dates: start: 2021
  2. DIPHENHYDRAMINE HYDROCHLORIDE [Concomitant]
     Active Substance: DIPHENHYDRAMINE HYDROCHLORIDE
     Dosage: UNK, TID
  3. ZYRTEC [Concomitant]
     Active Substance: CETIRIZINE HYDROCHLORIDE
  4. COVID-19 VACCINE [Concomitant]
     Dosage: FIRST DOSE
     Dates: start: 202103
  5. COVID-19 VACCINE [Concomitant]
     Dosage: UNK SECOND DOSE
     Dates: start: 202104

REACTIONS (1)
  - Hypersensitivity [Not Recovered/Not Resolved]
